FAERS Safety Report 5629499-X (Version None)
Quarter: 2008Q1

REPORT INFORMATION
  Report Type: 
  Country: None (occurrence: None)
  Receive Date: 20080215
  Receipt Date: 20080215
  Transmission Date: 20080703
  Serious: Yes (Death)
  Sender: FDA-Public Use
  Company Number: None

PATIENT
  Age: 77 Year
  Sex: Male
  Weight: 79.3795 kg

DRUGS (2)
  1. NAMENDA [Suspect]
     Indication: CARDIAC FAILURE CONGESTIVE
     Dosage: NAMENDA 10 BID
     Dates: start: 20070425, end: 20070625
  2. NAMENDA [Suspect]
     Indication: CARDIAC FAILURE CONGESTIVE
     Dosage: NAMENDA 10 3X/WK
     Dates: start: 20070705, end: 20070910

REACTIONS (3)
  - CARDIAC FAILURE CONGESTIVE [None]
  - CONDITION AGGRAVATED [None]
  - DYSPNOEA PAROXYSMAL NOCTURNAL [None]
